FAERS Safety Report 13224948 (Version 2)
Quarter: 2017Q1

REPORT INFORMATION
  Report Type: Spontaneous
  Country: US (occurrence: US)
  Receive Date: 20170213
  Receipt Date: 20170223
  Transmission Date: 20170428
  Serious: No
  Sender: FDA-Public Use
  Company Number: US-ASTRAZENECA-2017SE14032

PATIENT
  Sex: Female
  Weight: 176.9 kg

DRUGS (1)
  1. BYETTA [Suspect]
     Active Substance: EXENATIDE
     Indication: TYPE 2 DIABETES MELLITUS
     Route: 058

REACTIONS (6)
  - Visual impairment [Unknown]
  - Arthritis [Unknown]
  - Gait disturbance [Unknown]
  - Drug dose omission [Unknown]
  - Back pain [Unknown]
  - Pain in extremity [Unknown]
